FAERS Safety Report 19746412 (Version 3)
Quarter: 2021Q4

REPORT INFORMATION
  Report Type: Report from Study
  Country: US (occurrence: US)
  Receive Date: 20210826
  Receipt Date: 20211102
  Transmission Date: 20220303
  Serious: Yes (Death, Life-Threatening, Hospitalization, Other)
  Sender: FDA-Public Use
  Company Number: US-BRISTOL-MYERS SQUIBB COMPANY-BMS-2021-083935

PATIENT
  Age: 65 Year
  Sex: Female

DRUGS (22)
  1. NIVOLUMAB [Suspect]
     Active Substance: NIVOLUMAB
     Indication: Acute myeloid leukaemia recurrent
     Dosage: 62 MILLIGRAM, Q2WK
     Route: 042
     Dates: start: 20210608, end: 20210823
  2. IPILIMUMAB [Suspect]
     Active Substance: IPILIMUMAB
     Indication: Acute myeloid leukaemia recurrent
     Dosage: 62.5 MILLIGRAM, Q6WK
     Route: 042
     Dates: start: 20210608, end: 20210823
  3. MEPRON [Concomitant]
     Active Substance: ATOVAQUONE
     Indication: Prophylaxis
     Dosage: TAKE 10 ML (1,500 MG) BY MOUTH DAILY WITH BREAKFAST
     Route: 048
     Dates: start: 20210713
  4. VITAMIN D3 [Concomitant]
     Active Substance: CHOLECALCIFEROL
     Indication: Product used for unknown indication
     Dosage: TAKE 1000 UNITS BY MOUTH DAILY
     Route: 048
  5. BENTYL [Concomitant]
     Active Substance: DICYCLOMINE HYDROCHLORIDE
     Indication: Abdominal pain
     Dosage: TAKE 1 CAPSULE (10 MG) BY MOUTH EVERY 6 (SIX) HOURS AS NEEDED
     Route: 048
     Dates: start: 20210610
  6. FLONASE ALLERGY RELIEF [Concomitant]
     Active Substance: FLUTICASONE PROPIONATE
     Indication: Product used for unknown indication
     Dosage: INHALE 1 SPRAY INTO EACH NOSTRIL AS NEEDED
  7. NEURONTIN [Concomitant]
     Active Substance: GABAPENTIN
     Indication: Restless legs syndrome
     Dosage: TAKE 1 CAPSULE (300 MG) BY MOUTH NIGHTLY AS NEEDED
     Route: 048
     Dates: start: 20210331
  8. KYTRIL [Concomitant]
     Active Substance: GRANISETRON HYDROCHLORIDE
     Indication: Nausea
     Dosage: TAKE 1 TABLET (1 MG) BY MOUTH EVERY 12 (TWELVE) HOURS AS NEEDED FOR
     Route: 048
     Dates: start: 20210716
  9. CORTEF [Concomitant]
     Active Substance: HYDROCORTISONE
     Indication: Product used for unknown indication
     Dosage: TAKE 2 TABLETS BY MOUTH IN THE MORNING AND 1 TABLET BY MOUTH IN THE AFTERNOON
     Route: 048
     Dates: start: 20210317
  10. PREVYMIS [Concomitant]
     Active Substance: LETERMOVIR
     Indication: Prophylaxis
     Dosage: TAKE 1 TABLET (480 MG) BY MOUTH DAILY
     Route: 048
     Dates: start: 20210611
  11. CLARITIN [Concomitant]
     Active Substance: LORATADINE
     Indication: Hypersensitivity
     Dosage: TAKE 10 MG BY MOUTH DAILY AS NEEDED FOR
     Route: 048
  12. MG-PLUS-PROTEIN [Concomitant]
     Indication: Product used for unknown indication
     Dosage: TAKE 1 TABLET BY MOUTH TWICE DAILY. TAKE WITH FOOD. CAN USE IMODIUMN IF CAUSES DIARRHEA
     Route: 048
     Dates: start: 20210713
  13. MELATONIN [Concomitant]
     Active Substance: MELATONIN
     Indication: Insomnia
     Dosage: TAKE 1 TABLET (5 MG) BY MOUTH NIGHTLY AS NEEDED
     Route: 048
     Dates: start: 20210710
  14. PROAMATINE [Concomitant]
     Active Substance: MIDODRINE HYDROCHLORIDE
     Indication: Product used for unknown indication
     Dosage: TAKE 1 TABLET (5 MG) BY MOUTH 3 (THREE) TIMES A DAY.
     Route: 048
     Dates: start: 20210301
  15. ZYPREXA [Concomitant]
     Active Substance: OLANZAPINE
     Indication: Anxiety
     Dosage: TAKE HALF TABLETS (2.5 MG) BY MOUTH EVERY 6 (SIX) HOURS AS NEEDED FOR
     Route: 048
     Dates: start: 20210716
  16. PROTONIX [Concomitant]
     Active Substance: PANTOPRAZOLE SODIUM
     Indication: Prophylaxis
     Dosage: TAKE 1 TABLET (40 MG) BY MOUTH DAILY WITH BREAKFAST
     Route: 048
     Dates: start: 20210705
  17. NOXAFIL [Concomitant]
     Active Substance: POSACONAZOLE
     Indication: Prophylaxis
     Dosage: TAKE 3 TABLETS (300 MG) BY MOUTH DAILY
     Route: 048
     Dates: start: 20210611
  18. JANUVIA [Concomitant]
     Active Substance: SITAGLIPTIN PHOSPHATE
     Indication: Blood glucose fluctuation
     Dosage: TAKE 1 TABLET (50 MG) BY MOUTH DAILY
     Route: 048
     Dates: start: 20210612
  19. SODIUM CHLORIDE [Concomitant]
     Active Substance: SODIUM CHLORIDE
     Indication: Product used for unknown indication
     Dosage: INJECT 10 ML (1 SYRINGE) INTO EACH LUMEN OF CENTRAL VENOUS CATHETER DAILY AS DIRECTED
     Route: 065
     Dates: start: 20201211
  20. SODIUM CHLORIDE [Concomitant]
     Active Substance: SODIUM CHLORIDE
     Indication: Product used for unknown indication
     Dosage: TAKE 2 TABLETS (2 G) BY MOUTH 3 (THREE) TIMES A DAY
     Route: 048
     Dates: start: 20210728
  21. PROGRAF [Concomitant]
     Active Substance: TACROLIMUS
     Indication: Prophylaxis
     Dosage: TAKE 2 CAPSULES (1 MG) BY MOUTH EVERYEVENING AND 2 CAPSULES (1 MG) EVERY MORNING DO NOT TAKE AM DOSE
     Route: 048
     Dates: start: 20210618
  22. VALTREX [Concomitant]
     Active Substance: VALACYCLOVIR HYDROCHLORIDE
     Indication: Prophylaxis
     Dosage: TAKE 1 TABLET (500 MG) BY MOUTH DAILY.
     Route: 048
     Dates: start: 20201217

REACTIONS (2)
  - Sepsis [Fatal]
  - Colitis [Recovered/Resolved]

NARRATIVE: CASE EVENT DATE: 20210811
